FAERS Safety Report 9258117 (Version 1)
Quarter: 2013Q1

REPORT INFORMATION
  Report Type: Spontaneous
  Country: US (occurrence: None)
  Receive Date: 20121212
  Receipt Date: 20121212
  Transmission Date: 20140127
  Serious: No
  Sender: FDA-Public Use
  Company Number: 1207USA010850

PATIENT
  Age: 49 Year
  Sex: Female

DRUGS (4)
  1. REBETOL [Suspect]
     Indication: HEPATITIS C
     Dosage: UNK
     Dates: start: 20061101
  2. VICTRELIS [Suspect]
     Indication: HEPATITIS C
     Dates: start: 20120813
  3. PEGASYS (PEGINTERFERON ALFA-2A) [Concomitant]
  4. PEGASYS (PEGINTERFERON ALFA-2A) [Concomitant]

REACTIONS (6)
  - Influenza like illness [None]
  - Nausea [None]
  - No therapeutic response [None]
  - Fatigue [None]
  - Dysgeusia [None]
  - Drug ineffective [None]
